FAERS Safety Report 16389847 (Version 2)
Quarter: 2019Q2

REPORT INFORMATION
  Report Type: Report from Study
  Country: AU (occurrence: AU)
  Receive Date: 20190604
  Receipt Date: 20190605
  Transmission Date: 20190711
  Serious: Yes (Death, Other)
  Sender: FDA-Public Use
  Company Number: AU-PFIZER INC-2019229249

PATIENT
  Sex: Male

DRUGS (6)
  1. NITROUS OXIDE. [Suspect]
     Active Substance: NITROUS OXIDE
     Indication: INDUCTION OF ANAESTHESIA
     Dosage: UNK
  2. HALOTHANE. [Suspect]
     Active Substance: HALOTHANE
     Indication: INDUCTION OF ANAESTHESIA
     Dosage: UNK
  3. THIOPENTAL SODIUM. [Suspect]
     Active Substance: THIOPENTAL SODIUM
     Indication: INDUCTION OF ANAESTHESIA
     Dosage: UNK
  4. SCOPOLAMINE HBR [Concomitant]
     Active Substance: SCOPOLAMINE
     Indication: PREMEDICATION
     Dosage: 0.1 MG, UNK
  5. SUCCINYLCHOLINE CHLORIDE. [Suspect]
     Active Substance: SUCCINYLCHOLINE CHLORIDE
     Indication: INDUCTION OF ANAESTHESIA
     Dosage: UNK
  6. PAPAVERETUM [Concomitant]
     Indication: PREMEDICATION
     Dosage: 5 MG, UNK

REACTIONS (3)
  - Respiratory failure [Fatal]
  - Epilepsy [Fatal]
  - Cardiac arrest [Fatal]
